FAERS Safety Report 7624332-9 (Version None)
Quarter: 2011Q3

REPORT INFORMATION
  Report Type: 
  Country: None (occurrence: None)
  Receive Date: 20110720
  Receipt Date: 20110718
  Transmission Date: 20111222
  Serious: Yes (Hospitalization)
  Sender: FDA-Public Use
  Company Number: US-TEVA-289368USA

PATIENT
  Sex: Female

DRUGS (1)
  1. AVIANE-28 [Suspect]
     Indication: CONTRACEPTION
     Dates: start: 20110601

REACTIONS (4)
  - HAEMORRHAGE [None]
  - BACK PAIN [None]
  - MUSCLE SPASMS [None]
  - PRODUCT QUALITY ISSUE [None]
